FAERS Safety Report 5419308-6 (Version None)
Quarter: 2007Q3

REPORT INFORMATION
  Report Type: 
  Country: None (occurrence: None)
  Receive Date: 20070815
  Receipt Date: 20070806
  Transmission Date: 20080115
  Serious: Yes (Hospitalization)
  Sender: FDA-Public Use
  Company Number: 2007BI016680

PATIENT
  Age: 49 Year
  Sex: Female

DRUGS (1)
  1. AVONEX [Suspect]
     Indication: MULTIPLE SCLEROSIS
     Dosage: ; IM
     Route: 030
     Dates: start: 19991127, end: 20070729

REACTIONS (6)
  - CELLULITIS [None]
  - CONDITION AGGRAVATED [None]
  - FALL [None]
  - INCONTINENCE [None]
  - INTRA-ABDOMINAL HAEMATOMA [None]
  - MULTIPLE SCLEROSIS [None]
